FAERS Safety Report 20244764 (Version 3)
Quarter: 2022Q1

REPORT INFORMATION
  Report Type: Report from Study
  Country: JP (occurrence: JP)
  Receive Date: 20211229
  Receipt Date: 20220302
  Transmission Date: 20220424
  Serious: No
  Sender: FDA-Public Use
  Company Number: JP-BEH-2021139684

PATIENT
  Age: 20 Year
  Sex: Male
  Weight: 90.9 kg

DRUGS (40)
  1. IDELVION [Suspect]
     Active Substance: COAGULATION FACTOR IX RECOMBINANT HUMAN
     Indication: Haemorrhagic diathesis
     Dosage: 2000 INTERNATIONAL UNIT
     Route: 042
     Dates: start: 20181017, end: 20190925
  2. IDELVION [Suspect]
     Active Substance: COAGULATION FACTOR IX RECOMBINANT HUMAN
     Indication: Haemorrhagic diathesis
     Dosage: 2000 INTERNATIONAL UNIT
     Route: 042
     Dates: start: 20181017, end: 20190925
  3. IDELVION [Suspect]
     Active Substance: COAGULATION FACTOR IX RECOMBINANT HUMAN
     Indication: Factor IX deficiency
     Dosage: 2000 INTERNATIONAL UNIT, EVERY 10 DAYS OR SO
     Route: 042
     Dates: start: 20191005, end: 20200224
  4. IDELVION [Suspect]
     Active Substance: COAGULATION FACTOR IX RECOMBINANT HUMAN
     Indication: Factor IX deficiency
     Dosage: 2000 INTERNATIONAL UNIT, EVERY 10 DAYS OR SO
     Route: 042
     Dates: start: 20191005, end: 20200224
  5. IDELVION [Suspect]
     Active Substance: COAGULATION FACTOR IX RECOMBINANT HUMAN
     Indication: Prophylaxis
     Dosage: 2000 INTERNATIONAL UNIT
     Route: 042
     Dates: start: 20200305, end: 20200305
  6. IDELVION [Suspect]
     Active Substance: COAGULATION FACTOR IX RECOMBINANT HUMAN
     Indication: Prophylaxis
     Dosage: 2000 INTERNATIONAL UNIT
     Route: 042
     Dates: start: 20200305, end: 20200305
  7. IDELVION [Suspect]
     Active Substance: COAGULATION FACTOR IX RECOMBINANT HUMAN
     Dosage: 2000 INTERNATIONAL UNIT
     Route: 042
     Dates: start: 20200315, end: 20200315
  8. IDELVION [Suspect]
     Active Substance: COAGULATION FACTOR IX RECOMBINANT HUMAN
     Dosage: 2000 INTERNATIONAL UNIT
     Route: 042
     Dates: start: 20200315, end: 20200315
  9. IDELVION [Suspect]
     Active Substance: COAGULATION FACTOR IX RECOMBINANT HUMAN
     Dosage: 2000 INTERNATIONAL UNIT, EVERY 10 DAYS OR SO
     Route: 042
     Dates: start: 20200325, end: 20200416
  10. IDELVION [Suspect]
     Active Substance: COAGULATION FACTOR IX RECOMBINANT HUMAN
     Dosage: 2000 INTERNATIONAL UNIT, EVERY 10 DAYS OR SO
     Route: 042
     Dates: start: 20200325, end: 20200416
  11. IDELVION [Suspect]
     Active Substance: COAGULATION FACTOR IX RECOMBINANT HUMAN
     Dosage: 2000 INTERNATIONAL UNIT
     Route: 042
     Dates: start: 20200426, end: 20200426
  12. IDELVION [Suspect]
     Active Substance: COAGULATION FACTOR IX RECOMBINANT HUMAN
     Dosage: 2000 INTERNATIONAL UNIT
     Route: 042
     Dates: start: 20200426, end: 20200426
  13. IDELVION [Suspect]
     Active Substance: COAGULATION FACTOR IX RECOMBINANT HUMAN
     Dosage: 2000 INTERNATIONAL UNIT, EVERY 10 DAYS OR SO
     Route: 042
     Dates: start: 20200506, end: 20200615
  14. IDELVION [Suspect]
     Active Substance: COAGULATION FACTOR IX RECOMBINANT HUMAN
     Dosage: 2000 INTERNATIONAL UNIT, EVERY 10 DAYS OR SO
     Route: 042
     Dates: start: 20200506, end: 20200615
  15. IDELVION [Suspect]
     Active Substance: COAGULATION FACTOR IX RECOMBINANT HUMAN
     Dosage: 2000 INTERNATIONAL UNIT
     Route: 042
     Dates: start: 20200619, end: 20200625
  16. IDELVION [Suspect]
     Active Substance: COAGULATION FACTOR IX RECOMBINANT HUMAN
     Dosage: 2000 INTERNATIONAL UNIT
     Route: 042
     Dates: start: 20200619, end: 20200625
  17. IDELVION [Suspect]
     Active Substance: COAGULATION FACTOR IX RECOMBINANT HUMAN
     Dosage: 2000 INTERNATIONAL UNIT, EVERY 10 DAYS OR SO
     Route: 042
     Dates: start: 20200706, end: 20200726
  18. IDELVION [Suspect]
     Active Substance: COAGULATION FACTOR IX RECOMBINANT HUMAN
     Dosage: 2000 INTERNATIONAL UNIT, EVERY 10 DAYS OR SO
     Route: 042
     Dates: start: 20200706, end: 20200726
  19. IDELVION [Suspect]
     Active Substance: COAGULATION FACTOR IX RECOMBINANT HUMAN
     Dosage: 2000 INTERNATIONAL UNIT
     Route: 042
     Dates: start: 20200803, end: 20200803
  20. IDELVION [Suspect]
     Active Substance: COAGULATION FACTOR IX RECOMBINANT HUMAN
     Dosage: 2000 INTERNATIONAL UNIT
     Route: 042
     Dates: start: 20200803, end: 20200803
  21. IDELVION [Suspect]
     Active Substance: COAGULATION FACTOR IX RECOMBINANT HUMAN
     Dosage: 2000 INTERNATIONAL UNIT
     Route: 042
     Dates: start: 20200805, end: 20200805
  22. IDELVION [Suspect]
     Active Substance: COAGULATION FACTOR IX RECOMBINANT HUMAN
     Dosage: 2000 INTERNATIONAL UNIT
     Route: 042
     Dates: start: 20200805, end: 20200805
  23. IDELVION [Suspect]
     Active Substance: COAGULATION FACTOR IX RECOMBINANT HUMAN
     Dosage: 2000 INTERNATIONAL UNIT, EVERY 10 DAYS OR SO
     Route: 042
     Dates: start: 20200818, end: 20201025
  24. IDELVION [Suspect]
     Active Substance: COAGULATION FACTOR IX RECOMBINANT HUMAN
     Dosage: 2000 INTERNATIONAL UNIT, EVERY 10 DAYS OR SO
     Route: 042
     Dates: start: 20200818, end: 20201025
  25. IDELVION [Suspect]
     Active Substance: COAGULATION FACTOR IX RECOMBINANT HUMAN
     Dosage: 2000 INTERNATIONAL UNIT
     Route: 042
     Dates: start: 20200325, end: 20200615
  26. IDELVION [Suspect]
     Active Substance: COAGULATION FACTOR IX RECOMBINANT HUMAN
     Dosage: 2000 INTERNATIONAL UNIT
     Route: 042
     Dates: start: 20200325, end: 20200615
  27. IDELVION [Suspect]
     Active Substance: COAGULATION FACTOR IX RECOMBINANT HUMAN
     Dosage: 2000 INTERNATIONAL UNIT, QD
     Route: 042
     Dates: start: 20200906, end: 20200906
  28. IDELVION [Suspect]
     Active Substance: COAGULATION FACTOR IX RECOMBINANT HUMAN
     Dosage: 2000 INTERNATIONAL UNIT, QD
     Route: 042
     Dates: start: 20200906, end: 20200906
  29. IDELVION [Suspect]
     Active Substance: COAGULATION FACTOR IX RECOMBINANT HUMAN
     Dosage: 2000 INTERNATIONAL UNIT
     Route: 042
     Dates: start: 20200914, end: 20201025
  30. IDELVION [Suspect]
     Active Substance: COAGULATION FACTOR IX RECOMBINANT HUMAN
     Dosage: 2000 INTERNATIONAL UNIT
     Route: 042
     Dates: start: 20200914, end: 20201025
  31. BENEFIX [Suspect]
     Active Substance: COAGULATION FACTOR IX RECOMBINANT HUMAN\ISOPROPYL ALCOHOL
     Indication: Haemorrhage
     Dosage: 2000 INTERNATIONAL UNIT, QD
     Route: 065
     Dates: start: 20191009, end: 20191009
  32. BENEFIX [Suspect]
     Active Substance: COAGULATION FACTOR IX RECOMBINANT HUMAN\ISOPROPYL ALCOHOL
     Dosage: 2000 INTERNATIONAL UNIT
     Route: 065
     Dates: start: 20191014, end: 20191014
  33. BENEFIX [Suspect]
     Active Substance: COAGULATION FACTOR IX RECOMBINANT HUMAN\ISOPROPYL ALCOHOL
     Dosage: 2000 INTERNATIONAL UNIT, QD
     Route: 065
     Dates: start: 20191024, end: 20191024
  34. BENEFIX [Suspect]
     Active Substance: COAGULATION FACTOR IX RECOMBINANT HUMAN\ISOPROPYL ALCOHOL
     Dosage: 2000 INTERNATIONAL UNIT, QD
     Route: 065
     Dates: start: 20191230, end: 20191230
  35. BENEFIX [Suspect]
     Active Substance: COAGULATION FACTOR IX RECOMBINANT HUMAN\ISOPROPYL ALCOHOL
     Dosage: 2000 INTERNATIONAL UNIT, QD
     Route: 065
     Dates: start: 20200131, end: 20200131
  36. BENEFIX [Suspect]
     Active Substance: COAGULATION FACTOR IX RECOMBINANT HUMAN\ISOPROPYL ALCOHOL
     Dosage: 2000 INTERNATIONAL UNIT, QD
     Route: 065
     Dates: start: 20200814, end: 20200814
  37. BENEFIX [Suspect]
     Active Substance: COAGULATION FACTOR IX RECOMBINANT HUMAN\ISOPROPYL ALCOHOL
     Dosage: 2000 INTERNATIONAL UNIT, QD
     Route: 065
     Dates: start: 20200830, end: 20200830
  38. BENEFIX [Suspect]
     Active Substance: COAGULATION FACTOR IX RECOMBINANT HUMAN\ISOPROPYL ALCOHOL
     Dosage: 2000 INTERNATIONAL UNIT, QD
     Route: 065
     Dates: start: 20200907, end: 20200907
  39. BENEFIX [Suspect]
     Active Substance: COAGULATION FACTOR IX RECOMBINANT HUMAN\ISOPROPYL ALCOHOL
     Dosage: 2000 INTERNATIONAL UNIT, QD
     Route: 065
     Dates: start: 20200908, end: 20200908
  40. BENEFIX [Suspect]
     Active Substance: COAGULATION FACTOR IX RECOMBINANT HUMAN\ISOPROPYL ALCOHOL
     Dosage: 2000 INTERNATIONAL UNIT, QD
     Route: 065
     Dates: start: 20200911, end: 20200911

REACTIONS (2)
  - Haematuria [Recovered/Resolved]
  - Haematuria [Recovered/Resolved]

NARRATIVE: CASE EVENT DATE: 20200311
